FAERS Safety Report 25706257 (Version 1)
Quarter: 2025Q3

REPORT INFORMATION
  Report Type: Spontaneous
  Country: CN (occurrence: CN)
  Receive Date: 20250820
  Receipt Date: 20250820
  Transmission Date: 20251020
  Serious: Yes (Other)
  Sender: PFIZER
  Company Number: CN-PFIZER INC-PV202500099315

PATIENT
  Age: 73 Year
  Sex: Female
  Weight: 60 kg

DRUGS (4)
  1. TIGECYCLINE [Suspect]
     Active Substance: TIGECYCLINE
     Indication: Craniocerebral injury
     Dosage: 100 MG, 1X/DAY
     Route: 041
     Dates: start: 20250805, end: 20250812
  2. TIGECYCLINE [Suspect]
     Active Substance: TIGECYCLINE
     Indication: Cardiac arrest
  3. TIGECYCLINE [Suspect]
     Active Substance: TIGECYCLINE
     Indication: Resuscitation
  4. SODIUM CHLORIDE [Concomitant]
     Active Substance: SODIUM CHLORIDE
     Indication: Craniocerebral injury
     Dosage: 100 ML, 1X/DAY
     Route: 041
     Dates: start: 20250805, end: 20250812

REACTIONS (2)
  - White blood cell count decreased [Recovering/Resolving]
  - Off label use [Unknown]

NARRATIVE: CASE EVENT DATE: 20250805
